FAERS Safety Report 12934220 (Version 1)
Quarter: 2016Q4

REPORT INFORMATION
  Report Type: Spontaneous
  Country: BR (occurrence: BR)
  Receive Date: 20161111
  Receipt Date: 20161111
  Transmission Date: 20170207
  Serious: Yes (Other)
  Sender: FDA-Public Use
  Company Number: BR-009507513-1611BRA001444

PATIENT
  Age: 61 Year
  Sex: Male

DRUGS (5)
  1. ENALAPRIL MALEATE. [Suspect]
     Active Substance: ENALAPRIL MALEATE
     Indication: BLOOD PRESSURE ABNORMAL
     Dosage: WHENEVER WAS NECESSARY
     Route: 048
     Dates: end: 2016
  2. FUROSEMIDE. [Suspect]
     Active Substance: FUROSEMIDE
     Indication: RENAL FAILURE
     Dosage: 2 TABLETS DAILY
     Dates: start: 2015, end: 2016
  3. ATENOLOL. [Concomitant]
     Active Substance: ATENOLOL
     Indication: BLOOD PRESSURE ABNORMAL
     Dosage: WHENEVER WAS NECESSARY
     Dates: end: 2016
  4. ASPIRIN. [Suspect]
     Active Substance: ASPIRIN
     Indication: INFARCTION
     Dosage: 100MG, EVERY OTHER DAY
     Route: 048
     Dates: start: 1998, end: 2016
  5. CARDURAN [Suspect]
     Active Substance: DOXAZOSIN MESYLATE
     Indication: PROSTATIC DISORDER
     Dosage: 1 TABLET, QD
     Dates: start: 2016

REACTIONS (19)
  - Peripheral swelling [Not Recovered/Not Resolved]
  - Dysuria [Not Recovered/Not Resolved]
  - Tinnitus [Not Recovered/Not Resolved]
  - Peripheral vascular disorder [Not Recovered/Not Resolved]
  - Prostatic disorder [Not Recovered/Not Resolved]
  - Dry mouth [Not Recovered/Not Resolved]
  - Asthenia [Not Recovered/Not Resolved]
  - Rash [Recovering/Resolving]
  - Hypoacusis [Not Recovered/Not Resolved]
  - Micturition disorder [Not Recovered/Not Resolved]
  - Infarction [Unknown]
  - Gastrointestinal disorder [Not Recovered/Not Resolved]
  - Renal failure [Unknown]
  - Growing pains [Not Recovered/Not Resolved]
  - Hypoaesthesia [Not Recovered/Not Resolved]
  - Myalgia [Not Recovered/Not Resolved]
  - Blood pressure decreased [Not Recovered/Not Resolved]
  - Liver disorder [Not Recovered/Not Resolved]
  - Infarction [Unknown]

NARRATIVE: CASE EVENT DATE: 19970907
